FAERS Safety Report 7817505-3 (Version None)
Quarter: 2011Q4

REPORT INFORMATION
  Report Type: 
  Country: None (occurrence: None)
  Receive Date: 20111012
  Receipt Date: 20110930
  Transmission Date: 20120403
  Serious: Yes (Other)
  Sender: FDA-Public Use
  Company Number: AUR-APL-2010-00734

PATIENT
  Sex: Female

DRUGS (5)
  1. ZIDOVUDINE [Suspect]
     Indication: ANTIRETROVIRAL THERAPY
     Dosage: 600 MG (600 MG, UNKNOWN), UNKNOWN
     Dates: start: 20051204
  2. RITONAVIR [Suspect]
     Indication: ANTIRETROVIRAL THERAPY
     Dosage: 200 MG (200 MG, UNKNOWN), UNKNOWN
     Dates: start: 20070608
  3. LAMIVUDINE (LAMIVUDINE) (LAMIVUDINE) [Suspect]
     Indication: ANTIRETROVIRAL THERAPY
     Dosage: 300 MG (300 MG, UNKNOWN), UNKNOWN
     Dates: start: 20051204
  4. NELFINAVIR (NELFINAVIR) [Suspect]
     Indication: ANTIRETROVIRAL THERAPY
     Dosage: 1750 MG (1750 MG, UNKNOWN), UNKNOWN
     Dates: start: 20051204, end: 20070608
  5. LOPINAVIR (LOPINAVIR) [Suspect]
     Indication: ANTIRETROVIRAL THERAPY
     Dosage: 800 MG (800 MG, UNKNOWN), UNKNOWN
     Dates: start: 20070608

REACTIONS (2)
  - INTRA-UTERINE DEATH [None]
  - MATERNAL EXPOSURE DURING PREGNANCY [None]
